FAERS Safety Report 5912620-3 (Version None)
Quarter: 2008Q4

REPORT INFORMATION
  Report Type: 
  Country: None (occurrence: None)
  Receive Date: 20081008
  Receipt Date: 20080926
  Transmission Date: 20090506
  Serious: Yes (Other)
  Sender: FDA-Public Use
  Company Number: FR-ELI_LILLY_AND_COMPANY-FR200809006015

PATIENT
  Sex: Female

DRUGS (1)
  1. OPTRUMA [Suspect]
     Dosage: 1 D/F, ONE TABLET DAILY
     Route: 065

REACTIONS (1)
  - UTERINE POLYP [None]
